FAERS Safety Report 17404759 (Version 1)
Quarter: 2020Q1

REPORT INFORMATION
  Report Type: Spontaneous
  Country: US (occurrence: US)
  Receive Date: 20200211
  Receipt Date: 20200211
  Transmission Date: 20200409
  Serious: No
  Sender: FDA-Public Use
  Company Number: US-PURDUE-USA-2019-0148263

PATIENT
  Sex: Female

DRUGS (4)
  1. FLONASE [Concomitant]
     Active Substance: FLUTICASONE PROPIONATE
     Indication: PRODUCT USED FOR UNKNOWN INDICATION
     Route: 065
  2. BUTRANS [Suspect]
     Active Substance: BUPRENORPHINE
     Dosage: 15 MCG/HR, WEEKLY
     Route: 062
  3. BUTRANS [Suspect]
     Active Substance: BUPRENORPHINE
     Indication: PRODUCT USED FOR UNKNOWN INDICATION
     Dosage: 15 MCG/HR, WEEKLY
     Route: 062
     Dates: start: 201903
  4. BUTRANS [Suspect]
     Active Substance: BUPRENORPHINE
     Dosage: 15 MCG/HR, WEEKLY
     Route: 062
     Dates: end: 201904

REACTIONS (14)
  - Application site papules [Not Recovered/Not Resolved]
  - Product adhesion issue [Unknown]
  - Skin burning sensation [Unknown]
  - Application site scar [Recovering/Resolving]
  - Application site burn [Unknown]
  - Drug ineffective [Unknown]
  - Skin irritation [Unknown]
  - Application site rash [Unknown]
  - Application site pruritus [Unknown]
  - Application site irritation [Unknown]
  - Application site erythema [Not Recovered/Not Resolved]
  - Wrong technique in product usage process [Unknown]
  - Product complaint [Unknown]
  - Application site urticaria [Unknown]

NARRATIVE: CASE EVENT DATE: 2019
